FAERS Safety Report 6082486-2 (Version None)
Quarter: 2009Q1

REPORT INFORMATION
  Report Type: 
  Country: None (occurrence: None)
  Receive Date: 20090218
  Receipt Date: 20090211
  Transmission Date: 20090719
  Serious: Yes (Death)
  Sender: FDA-Public Use
  Company Number: DE-BRISTOL-MYERS SQUIBB COMPANY-14451066

PATIENT
  Age: 45 Year
  Sex: Male
  Weight: 84 kg

DRUGS (16)
  1. ABILIFY [Suspect]
     Indication: PSYCHOTIC DISORDER
     Dosage: 03DEC08: 1X 9.75MG 04DEC08: 2X 9.75MG(1 IN 12HRS) 05DEC08: 2X 9.75MG(1 IN 12HRS)
     Route: 030
     Dates: start: 20081203, end: 20081206
  2. HALOPERIDOL [Suspect]
     Dosage: INITIALLY, 40MG
  3. NEUROCIL [Concomitant]
     Dosage: FORMULATION=TABLETS
     Route: 048
  4. AKINETON [Concomitant]
  5. DIAZEPAM [Concomitant]
  6. CLEXANE [Concomitant]
     Route: 058
  7. ROCEPHIN [Concomitant]
     Indication: PNEUMONIA
     Route: 042
     Dates: start: 20081204
  8. ROCEPHIN [Concomitant]
     Indication: BODY TEMPERATURE INCREASED
     Route: 042
     Dates: start: 20081204
  9. BISOHEXAL [Concomitant]
     Indication: HYPERTENSION
  10. METFORMIN HCL [Concomitant]
     Indication: TYPE 2 DIABETES MELLITUS
  11. BEZAFIBRATE [Concomitant]
     Indication: TYPE 2 DIABETES MELLITUS
  12. FUROSEMIDE [Concomitant]
     Route: 042
  13. ATOSIL [Concomitant]
  14. HALDOL [Concomitant]
     Dosage: DROPS
  15. DOMINAL [Concomitant]
  16. ELECTROLYTE SOLUTION [Concomitant]
     Dosage: 1-0-1-0

REACTIONS (2)
  - LEFT VENTRICULAR FAILURE [None]
  - SUDDEN DEATH [None]
